FAERS Safety Report 6080219-7 (Version None)
Quarter: 2009Q1

REPORT INFORMATION
  Report Type: 
  Country: None (occurrence: None)
  Receive Date: 20090217
  Receipt Date: 20090205
  Transmission Date: 20090719
  Serious: Yes (Other)
  Sender: FDA-Public Use
  Company Number: FR-CELGENEUS-056-20484-08120945

PATIENT
  Sex: Female
  Weight: 56 kg

DRUGS (2)
  1. INNOHEP [Suspect]
     Route: 058
     Dates: start: 20081119, end: 20081120
  2. LOVENOX [Concomitant]
     Indication: DRUG USE FOR UNKNOWN INDICATION
     Route: 065

REACTIONS (2)
  - INJECTION SITE NECROSIS [None]
  - INTENTIONAL DRUG MISUSE [None]
